FAERS Safety Report 5537400-2 (Version None)
Quarter: 2007Q4

REPORT INFORMATION
  Report Type: 
  Country: None (occurrence: None)
  Receive Date: 20071207
  Receipt Date: 20071127
  Transmission Date: 20080405
  Serious: Yes (Hospitalization)
  Sender: FDA-Public Use
  Company Number: B0495202A

PATIENT
  Age: 52 Year
  Sex: Female

DRUGS (2)
  1. LAPATINIB [Suspect]
     Dosage: 1250MG PER DAY
     Route: 048
     Dates: start: 20070517
  2. CAPECITABINE [Suspect]
     Dosage: 1325MG TWICE PER DAY
     Route: 048
     Dates: start: 20070517

REACTIONS (1)
  - DYSPNOEA [None]
